FAERS Safety Report 7093530-8 (Version None)
Quarter: 2010Q4

REPORT INFORMATION
  Report Type: 
  Country: None (occurrence: None)
  Receive Date: 20101029
  Receipt Date: 20101018
  Transmission Date: 20110411
  Serious: Yes (Other)
  Sender: FDA-Public Use
  Company Number: 1000015996

PATIENT
  Age: 5 Month
  Sex: Male
  Weight: 2.46 kg

DRUGS (1)
  1. ESCITALOPRAM [Suspect]
     Dosage: 10 MG (10 MG, 1 IN 1 D), TRANSPLACENTAL
     Route: 064
     Dates: start: 20090101, end: 20100126

REACTIONS (4)
  - APGAR SCORE LOW [None]
  - FOETAL GROWTH RESTRICTION [None]
  - FOETAL HEART RATE DECELERATION [None]
  - MATERNAL DRUGS AFFECTING FOETUS [None]
